FAERS Safety Report 8879669 (Version 1)
Quarter: 2012Q4

REPORT INFORMATION
  Report Type: 
  Country: US (occurrence: US)
  Receive Date: 20121101
  Receipt Date: 20121101
  Transmission Date: 20130627
  Serious: Yes (Other)
  Sender: FDA-Public Use
  Company Number: US-009507513-2012SP023468

PATIENT
  Sex: Female
  Weight: 58.5 kg

DRUGS (1)
  1. IMPLANON [Suspect]
     Indication: CONTRACEPTION
     Dosage: 68 mg, UNK
     Route: 059
     Dates: start: 20120110, end: 20120501

REACTIONS (3)
  - Blindness [Not Recovered/Not Resolved]
  - Retinal artery thrombosis [Unknown]
  - Retinal vein thrombosis [Not Recovered/Not Resolved]
